FAERS Safety Report 13967325 (Version 1)
Quarter: 2017Q3

REPORT INFORMATION
  Report Type: Spontaneous
  Country: IT (occurrence: IT)
  Receive Date: 20170914
  Receipt Date: 20170914
  Transmission Date: 20171128
  Serious: Yes (Hospitalization, Other)
  Sender: FDA-Public Use
  Company Number: IT-AUROBINDO-AUR-APL-2012-01729

PATIENT

DRUGS (9)
  1. LEVOFLOXACIN. [Suspect]
     Active Substance: LEVOFLOXACIN
     Indication: BACTERIAL INFECTION
     Dosage: 500 MG,DAILY,
     Route: 048
  2. TRAMADOL. [Interacting]
     Active Substance: TRAMADOL
     Indication: PRODUCT USED FOR UNKNOWN INDICATION
     Dosage: UNK UNK,AS NECESSARY,
     Route: 065
  3. ENALAPRIL/HYDROCHLOROTHIAZIDE [Interacting]
     Active Substance: ENALAPRIL MALEATE\HYDROCHLOROTHIAZIDE
     Indication: HYPERTENSION
     Dosage: UNK UNK,ONCE A DAY,,20MG/12.5 MG
     Route: 048
  4. ACETYLSALICYLIC ACID [Concomitant]
     Active Substance: ASPIRIN
     Indication: ANTIPLATELET THERAPY
     Dosage: 100 MG,ONCE A DAY,
     Route: 048
  5. BUPRENORPHINE. [Interacting]
     Active Substance: BUPRENORPHINE
     Indication: PAIN
     Dosage: 35 ?G,EVERY HOUR,
     Route: 062
  6. NADROPARIN [Interacting]
     Active Substance: NADROPARIN
     Indication: ISCHAEMIC STROKE
     Dosage: 3800 IU,DAILY,
     Route: 058
  7. ENALAPRIL [Interacting]
     Active Substance: ENALAPRIL
     Indication: HYPERTENSION
     Dosage: 20 MG,ONCE A DAY,
     Route: 048
  8. METFORMINA + GLIBENCLAMIDA /01182201/ [Interacting]
     Active Substance: GLYBURIDE\METFORMIN
     Indication: TYPE 2 DIABETES MELLITUS
     Dosage: UNK UNK,3 TIMES A DAY,,400MG/2.5MG
     Route: 048
  9. LANSOPRAZOLE. [Concomitant]
     Active Substance: LANSOPRAZOLE
     Indication: PRODUCT USED FOR UNKNOWN INDICATION
     Dosage: 30 MG,UNK,
     Route: 065

REACTIONS (4)
  - Coma [Recovered/Resolved]
  - Drug interaction [Unknown]
  - Hypoglycaemia [Recovered/Resolved]
  - Skin warm [Recovered/Resolved]
